FAERS Safety Report 11659267 (Version 1)
Quarter: 2015Q4

REPORT INFORMATION
  Report Type: Spontaneous
  Country: US (occurrence: US)
  Receive Date: 20151026
  Receipt Date: 20151026
  Transmission Date: 20160304
  Serious: No
  Sender: FDA-Public Use
  Company Number: US-MEDA-2010090050

PATIENT
  Age: 50 Year
  Sex: Female
  Weight: 91 kg

DRUGS (19)
  1. VIMPAT [Concomitant]
     Active Substance: LACOSAMIDE
     Indication: SEIZURE
     Route: 048
     Dates: start: 2008
  2. IBUPROFEN. [Concomitant]
     Active Substance: IBUPROFEN
     Route: 048
  3. AMBIEN CR [Concomitant]
     Active Substance: ZOLPIDEM TARTRATE
     Indication: SLEEP DISORDER
     Route: 048
     Dates: start: 2008
  4. PROTOPIC [Concomitant]
     Active Substance: TACROLIMUS
     Indication: RASH
     Route: 061
     Dates: start: 201003
  5. ALAWAY [Concomitant]
     Active Substance: KETOTIFEN FUMARATE
     Route: 047
  6. ASTEPRO [Suspect]
     Active Substance: AZELASTINE HYDROCHLORIDE
     Indication: PRODUCTIVE COUGH
     Dates: start: 20100920
  7. CLONAZEPAM. [Concomitant]
     Active Substance: CLONAZEPAM
     Indication: SLEEP DISORDER
     Route: 048
     Dates: start: 1995
  8. LAMICTAL [Concomitant]
     Active Substance: LAMOTRIGINE
     Indication: SEIZURE
     Route: 048
  9. NEXIUM [Concomitant]
     Active Substance: ESOMEPRAZOLE MAGNESIUM
     Indication: GASTROOESOPHAGEAL REFLUX DISEASE
     Route: 048
     Dates: start: 2005
  10. BONIVA [Concomitant]
     Active Substance: IBANDRONATE SODIUM
     Indication: BONE LOSS
     Route: 048
     Dates: start: 2005
  11. ZOLOFT [Concomitant]
     Active Substance: SERTRALINE HYDROCHLORIDE
     Indication: DEPRESSION
     Route: 048
     Dates: start: 2000
  12. HYOMAX [Concomitant]
     Active Substance: HYOSCYAMINE SULFATE
     Indication: GASTROINTESTINAL PAIN
     Route: 048
     Dates: start: 2008
  13. OMNARIS [Concomitant]
     Active Substance: CICLESONIDE
     Indication: COUGH
     Dates: start: 201009
  14. OMNARIS [Concomitant]
     Active Substance: CICLESONIDE
     Indication: RHINORRHOEA
     Dates: start: 201009
  15. BENADRYL [Concomitant]
     Active Substance: DIPHENHYDRAMINE HYDROCHLORIDE
     Route: 048
  16. TRIAMCINOLONE [Concomitant]
     Active Substance: TRIAMCINOLONE
     Indication: RASH
     Route: 061
     Dates: start: 201003
  17. ASTEPRO [Suspect]
     Active Substance: AZELASTINE HYDROCHLORIDE
     Indication: RHINORRHOEA
     Dates: start: 20100920
  18. CLARINEX [Concomitant]
     Active Substance: DESLORATADINE
     Route: 048
     Dates: start: 201003
  19. PREMARIN [Concomitant]
     Active Substance: ESTROGENS, CONJUGATED
     Indication: BONE LOSS
     Route: 048
     Dates: start: 1992

REACTIONS (4)
  - Wrong technique in product usage process [Recovered/Resolved]
  - Dysgeusia [Recovering/Resolving]
  - Vomiting [Recovered/Resolved]
  - Dysphonia [Recovering/Resolving]

NARRATIVE: CASE EVENT DATE: 20100920
